FAERS Safety Report 17733384 (Version 1)
Quarter: 2020Q2

REPORT INFORMATION
  Report Type: Spontaneous
  Country: US (occurrence: US)
  Receive Date: 20200501
  Receipt Date: 20200501
  Transmission Date: 20200714
  Serious: No
  Sender: FDA-Public Use
  Company Number: US-GALDERMA-US2020012798

PATIENT
  Age: 29 Year
  Sex: Female

DRUGS (7)
  1. PROACTIV REPAIRING TREATMENT [Concomitant]
     Active Substance: BENZOYL PEROXIDE
     Indication: ACNE
     Route: 061
     Dates: start: 201909, end: 201912
  2. PROACTIV MAKEUP CLEANSING WIPES [Concomitant]
     Indication: ACNE
     Route: 061
     Dates: start: 201909, end: 201912
  3. PROACTIV MD ADAPALENE ACNE TREATMENT [Suspect]
     Active Substance: ADAPALENE
     Indication: ACNE
     Dosage: 0.1%
     Route: 061
     Dates: start: 201909, end: 201912
  4. PROACTIV REPAIRING TREATMENT [Concomitant]
     Active Substance: BENZOYL PEROXIDE
     Route: 061
     Dates: start: 201909, end: 201912
  5. PROACTIV MAKEUP CLEANSING WIPES [Concomitant]
     Route: 061
     Dates: start: 201909, end: 201912
  6. PROACTIV GREEN TEA MOISTURIZER [Concomitant]
     Active Substance: COSMETICS
     Indication: ACNE
     Route: 061
     Dates: start: 201909, end: 201912
  7. PROACTIV GREEN TEA MOISTURIZER [Concomitant]
     Active Substance: COSMETICS
     Route: 061
     Dates: start: 201909, end: 201912

REACTIONS (2)
  - Acne [Recovered/Resolved]
  - Skin exfoliation [Recovered/Resolved]

NARRATIVE: CASE EVENT DATE: 201911
